FAERS Safety Report 25677704 (Version 1)
Quarter: 2025Q3

REPORT INFORMATION
  Report Type: Spontaneous
  Country: US (occurrence: US)
  Receive Date: 20250813
  Receipt Date: 20250813
  Transmission Date: 20251020
  Serious: No
  Sender: TAKEDA
  Company Number: US-TAKEDA-2025TUS070600

PATIENT
  Sex: Female
  Weight: 49 kg

DRUGS (2)
  1. ENTYVIO [Suspect]
     Active Substance: VEDOLIZUMAB
     Indication: Crohn^s disease
     Dates: start: 20250729, end: 20250729
  2. ZYRTEC [Concomitant]
     Active Substance: CETIRIZINE HYDROCHLORIDE

REACTIONS (8)
  - Drug hypersensitivity [Unknown]
  - Throat tightness [Unknown]
  - Hypoaesthesia [Unknown]
  - Tachycardia [Unknown]
  - Asthenia [Unknown]
  - Chest discomfort [Unknown]
  - Blood pressure increased [Unknown]
  - Paraesthesia [Unknown]
